FAERS Safety Report 25251421 (Version 1)
Quarter: 2025Q2

REPORT INFORMATION
  Report Type: Spontaneous
  Country: ES (occurrence: ES)
  Receive Date: 20250429
  Receipt Date: 20250429
  Transmission Date: 20250716
  Serious: Yes (Other)
  Sender: NOVARTIS
  Company Number: None

PATIENT
  Age: 30 Year
  Sex: Female

DRUGS (2)
  1. CYCLOSPORINE [Interacting]
     Active Substance: CYCLOSPORINE
     Indication: Dermatitis atopic
     Dosage: 250 MG, QD
     Route: 048
     Dates: start: 20250110
  2. DUPILUMAB [Interacting]
     Active Substance: DUPILUMAB
     Indication: Dermatitis atopic
     Route: 058
     Dates: start: 20250110

REACTIONS (1)
  - Blepharokeratoconjunctivitis [Recovered/Resolved]

NARRATIVE: CASE EVENT DATE: 20250220
